FAERS Safety Report 24011377 (Version 1)
Quarter: 2024Q2

REPORT INFORMATION
  Report Type: Report from Study
  Country: US (occurrence: US)
  Receive Date: 20240625
  Receipt Date: 20240625
  Transmission Date: 20240716
  Serious: Yes (Hospitalization)
  Sender: FDA-Public Use
  Company Number: US-BAXTER-2024BAX020083

PATIENT
  Age: 41 Year
  Sex: Male

DRUGS (5)
  1. CYCLOPHOSPHAMIDE [Suspect]
     Active Substance: CYCLOPHOSPHAMIDE
     Indication: Enteropathy-associated T-cell lymphoma
     Dosage: 1360 MG (750 MG/M2), CYCLIC (C1D1), AS A PART OF CHEP-BV TREATMENT
     Route: 042
     Dates: start: 20240416, end: 20240416
  2. DOXORUBICIN [Suspect]
     Active Substance: DOXORUBICIN
     Indication: Enteropathy-associated T-cell lymphoma
     Dosage: 91 MG (50 MG/M2), CYCLIC (C1D1), AS A PART OF CHEP-BV TREATMENT
     Route: 042
     Dates: start: 20240416, end: 20240416
  3. BRENTUXIMAB VEDOTIN [Suspect]
     Active Substance: BRENTUXIMAB VEDOTIN
     Indication: Enteropathy-associated T-cell lymphoma
     Dosage: 125.5 MG (1.8 MG/KG), CYCLIC (C1D1), AS A PART OF CHEP-BV TREATMENT
     Route: 042
     Dates: start: 20240416, end: 20240416
  4. ETOPOSIDE [Suspect]
     Active Substance: ETOPOSIDE
     Indication: Enteropathy-associated T-cell lymphoma
     Dosage: 184 MG (100 MG/M2), CYCLIC (C1D1), AS A PART OF CHEP-BV TREATMENT
     Route: 042
     Dates: start: 20240416, end: 20240416
  5. PREDNISONE [Suspect]
     Active Substance: PREDNISONE
     Indication: Enteropathy-associated T-cell lymphoma
     Dosage: 100 MG, CYCLIC (C1D1), AS A PART OF CHEP-BV TREATMENT
     Route: 048
     Dates: start: 20240416, end: 20240416

REACTIONS (1)
  - Pyrexia [Recovered/Resolved]

NARRATIVE: CASE EVENT DATE: 20240417
